FAERS Safety Report 9515750 (Version 6)
Quarter: 2013Q4

REPORT INFORMATION
  Report Type: Spontaneous
  Country: US (occurrence: US)
  Receive Date: 20130911
  Receipt Date: 20131112
  Transmission Date: 20140711
  Serious: Yes (Other)
  Sender: FDA-Public Use
  Company Number: US-PFIZER INC-2013258567

PATIENT
  Age: 63 Year
  Sex: Female
  Weight: 81.6 kg

DRUGS (8)
  1. PREMARIN [Suspect]
     Indication: VULVOVAGINAL DRYNESS
     Dosage: 1 G, TWO / THREE TIMES A WEEK
     Route: 067
     Dates: start: 1999
  2. PREMARIN [Suspect]
     Indication: ATROPHIC VULVOVAGINITIS
     Dosage: 1 G, TWO / THREE TIMES A WEEK
     Route: 067
  3. PREMARIN [Suspect]
     Dosage: 1 G, TWO / THREE TIMES A WEEK
     Route: 067
  4. PREMARIN [Suspect]
     Dosage: 1.5 G, 2X/WEEK
     Route: 067
  5. PREMARIN [Suspect]
     Dosage: (1.5M - 2) G, 2X/WEEK
     Route: 067
  6. DIOVAN [Concomitant]
     Dosage: UNK
  7. AMLODIPINE [Concomitant]
     Dosage: UNK
  8. ALPRAZOLAM [Concomitant]
     Dosage: UNK

REACTIONS (8)
  - Uterine leiomyoma [Unknown]
  - Breast mass [Unknown]
  - Enterocele [Recovered/Resolved]
  - Breast discomfort [Unknown]
  - Hormone level abnormal [Unknown]
  - Weight abnormal [Unknown]
  - Product quality issue [Unknown]
  - Incorrect dose administered [Unknown]
